FAERS Safety Report 23464748 (Version 1)
Quarter: 2024Q1

REPORT INFORMATION
  Report Type: Spontaneous
  Country: US (occurrence: US)
  Receive Date: 20240201
  Receipt Date: 20240201
  Transmission Date: 20240409
  Serious: No
  Sender: FDA-Public Use
  Company Number: US-ABBVIE-5613407

PATIENT
  Age: 60 Year
  Sex: Male
  Weight: 97 kg

DRUGS (5)
  1. LUPRON [Suspect]
     Active Substance: LEUPROLIDE ACETATE
     Indication: Product used for unknown indication
     Route: 065
  2. VITAMIN C [Concomitant]
     Active Substance: ASCORBIC ACID
     Indication: Product used for unknown indication
     Dosage: FORM STRENGTH: 500 MILLIGRAM
  3. ZINC GLUCONATE [Concomitant]
     Active Substance: ZINC GLUCONATE
     Indication: Product used for unknown indication
     Dosage: FORM STRENGTH: 100 MILLIGRAM
  4. VITAMIN D [Concomitant]
     Active Substance: VITAMIN D NOS
     Indication: Product used for unknown indication
  5. XTANDI [Suspect]
     Active Substance: ENZALUTAMIDE
     Indication: Neoplasm malignant
     Dosage: FORM STRENGTH: 80 MILLIGRAM
     Route: 065
     Dates: start: 20230623

REACTIONS (4)
  - Prostatic specific antigen increased [Not Recovered/Not Resolved]
  - Joint stiffness [Unknown]
  - Hot flush [Unknown]
  - Arthralgia [Unknown]

NARRATIVE: CASE EVENT DATE: 20230701
